FAERS Safety Report 4993495-6 (Version None)
Quarter: 2006Q2

REPORT INFORMATION
  Report Type: 
  Country: None (occurrence: None)
  Receive Date: 20060504
  Receipt Date: 20060504
  Transmission Date: 20061013
  Serious: Yes (Death)
  Sender: FDA-Public Use
  Company Number: None

PATIENT
  Age: 59 Year
  Sex: Male

DRUGS (12)
  1. METHOTREXATE [Suspect]
     Indication: RHEUMATOID ARTHRITIS
     Dosage: 2.5MG TABLETS AS 2 TABLETS PO
     Route: 048
     Dates: start: 20021101, end: 20060207
  2. ACETAMINOPHEN/CODEINE [Concomitant]
  3. ASPIRIN [Concomitant]
  4. CHLORPHENIRAMINE MALEATE [Concomitant]
  5. CITALOPRAM HYDROBROMIDE [Concomitant]
  6. FOLIC ACID [Concomitant]
  7. FUROSEMIDE [Concomitant]
  8. IBUPROFEN [Concomitant]
  9. LORAZEPAM [Concomitant]
  10. MIRTAZAPINE [Concomitant]
  11. NITROGLYCERIN [Concomitant]
  12. POTASSIUM CHLORIDE [Concomitant]

REACTIONS (8)
  - ACUTE RESPIRATORY DISTRESS SYNDROME [None]
  - DRUG TOXICITY [None]
  - ERYTHEMA MULTIFORME [None]
  - PAIN IN EXTREMITY [None]
  - PANCYTOPENIA [None]
  - RENAL FAILURE [None]
  - RETROPERITONEAL HAEMORRHAGE [None]
  - SEPSIS [None]
